FAERS Safety Report 7335055-8 (Version None)
Quarter: 2011Q1

REPORT INFORMATION
  Report Type: 
  Country: None (occurrence: None)
  Receive Date: 20110307
  Receipt Date: 20110225
  Transmission Date: 20110831
  Serious: Yes (Death, Other)
  Sender: FDA-Public Use
  Company Number: US-ABBOTT-10P-163-0684973-00

PATIENT
  Sex: Female
  Weight: 85 kg

DRUGS (12)
  1. METHOTREXATE [Concomitant]
     Indication: RHEUMATOID ARTHRITIS
     Route: 048
     Dates: start: 19970716
  2. POTASSIUM CHLORIDE [Concomitant]
     Route: 048
     Dates: start: 20101029, end: 20101103
  3. HYDROXYCHLOROQUINE [Concomitant]
     Indication: RHEUMATOID ARTHRITIS
     Route: 048
     Dates: start: 19960119
  4. POTASSIUM CHLORIDE [Concomitant]
     Indication: HYPOKALAEMIA
     Route: 048
     Dates: start: 20101022, end: 20101028
  5. POTASSIUM CHLORIDE [Concomitant]
     Route: 048
     Dates: start: 20101104
  6. IBUPROFEN [Concomitant]
     Indication: RHEUMATOID ARTHRITIS
     Route: 048
     Dates: start: 19970626
  7. HUMIRA [Suspect]
     Indication: RHEUMATOID ARTHRITIS
     Route: 058
     Dates: start: 20010307, end: 20101020
  8. LISINOPRIL AND HYDROCHLOROTHIAZIDE [Concomitant]
     Dosage: 20/12.5MG ONCE A DAY
     Route: 048
     Dates: start: 20100504, end: 20101019
  9. LASIX [Concomitant]
     Indication: OEDEMA
     Route: 048
     Dates: start: 20101103
  10. LISINOPRIL AND HYDROCHLOROTHIAZIDE [Concomitant]
     Indication: BLOOD PRESSURE INCREASED
     Dosage: 20/12.5MG TWICE A DAY
     Route: 048
     Dates: start: 20101020
  11. FOSAMAX [Concomitant]
     Indication: OSTEOPOROSIS
     Route: 048
     Dates: start: 20010419
  12. MULTI-VITAMIN [Concomitant]
     Indication: VITAMIN SUPPLEMENTATION
     Route: 048
     Dates: start: 20000823

REACTIONS (1)
  - METASTASES TO LIVER [None]
